FAERS Safety Report 4453266-6 (Version None)
Quarter: 2004Q3

REPORT INFORMATION
  Report Type: 
  Country: None (occurrence: None)
  Receive Date: 20040901
  Receipt Date: 20040521
  Transmission Date: 20050211
  Serious: Yes (Hospitalization)
  Sender: FDA-Public Use
  Company Number: US077658

PATIENT
  Age: 67 Year
  Sex: Male

DRUGS (7)
  1. ENBREL [Suspect]
     Indication: RHEUMATOID ARTHRITIS
     Dosage: 25 MG, 2 IN 1 WEEKS, SC
     Route: 058
     Dates: start: 20000101
  2. COLCHINE [Concomitant]
  3. DILTIAZEM HYDROCHLORIDE [Concomitant]
  4. SIMVASTATIN [Concomitant]
  5. AMITRIPTYLINE HCL [Concomitant]
  6. ACETYLSALICYLIC ACID [Concomitant]
  7. NITROGLYCERIN [Concomitant]

REACTIONS (1)
  - COLON CANCER [None]
